FAERS Safety Report 11772107 (Version 2)
Quarter: 2016Q4

REPORT INFORMATION
  Report Type: Spontaneous
  Country: US (occurrence: US)
  Receive Date: 20151124
  Receipt Date: 20161125
  Transmission Date: 20170206
  Serious: Yes (Hospitalization)
  Sender: FDA-Public Use
  Company Number: US-WEST-WARD PHARMACEUTICALS CORP.-US-H14001-14-01437

PATIENT
  Age: 34 Year
  Sex: Female

DRUGS (1)
  1. PROGESTERONE INJECTION [Suspect]
     Active Substance: PROGESTERONE
     Indication: INFERTILITY
     Route: 030
     Dates: start: 20140920, end: 2014

REACTIONS (4)
  - Hypersensitivity [Recovered/Resolved]
  - Off label use [Recovered/Resolved]
  - Pruritus [Recovered/Resolved]
  - Pyrexia [Recovered/Resolved]

NARRATIVE: CASE EVENT DATE: 201409
